FAERS Safety Report 6107760-2 (Version None)
Quarter: 2009Q1

REPORT INFORMATION
  Report Type: 
  Country: None (occurrence: None)
  Receive Date: 20090309
  Receipt Date: 20090305
  Transmission Date: 20090719
  Serious: Yes (Hospitalization)
  Sender: FDA-Public Use
  Company Number: B0331548F

PATIENT
  Age: 75 Year
  Sex: Female
  Weight: 107.4 kg

DRUGS (2)
  1. ROSIGLITAZONE [Suspect]
     Dosage: 4MG PER DAY
     Route: 048
     Dates: start: 20020416, end: 20070415
  2. MANINIL [Concomitant]
     Route: 048

REACTIONS (5)
  - ARTHRALGIA [None]
  - CARDIAC FAILURE [None]
  - DYSPNOEA [None]
  - HYPERTENSIVE CRISIS [None]
  - OEDEMA PERIPHERAL [None]
